FAERS Safety Report 16855668 (Version 6)
Quarter: 2023Q1

REPORT INFORMATION
  Report Type: Spontaneous
  Country: US (occurrence: US)
  Receive Date: 20190926
  Receipt Date: 20230316
  Transmission Date: 20230417
  Serious: Yes (Hospitalization, Other)
  Sender: FDA-Public Use
  Company Number: US-GILEAD-2019-0429738

PATIENT
  Age: 60 Year
  Sex: Female
  Weight: 81.179 kg

DRUGS (60)
  1. TRUVADA [Suspect]
     Active Substance: EMTRICITABINE\TENOFOVIR DISOPROXIL FUMARATE
     Indication: HIV infection
     Dosage: UNK
     Route: 048
     Dates: start: 20120907, end: 20141119
  2. TRUVADA [Suspect]
     Active Substance: EMTRICITABINE\TENOFOVIR DISOPROXIL FUMARATE
     Dosage: UNK
     Route: 048
     Dates: start: 20120912, end: 20141216
  3. TRUVADA [Suspect]
     Active Substance: EMTRICITABINE\TENOFOVIR DISOPROXIL FUMARATE
     Dosage: UNK
     Route: 048
     Dates: start: 20120912, end: 20150110
  4. ATRIPLA [Suspect]
     Active Substance: EFAVIRENZ\EMTRICITABINE\TENOFOVIR DISOPROXIL FUMARATE
     Indication: HIV infection
     Dosage: UNK
     Route: 048
     Dates: start: 20090708, end: 20120812
  5. ATRIPLA [Suspect]
     Active Substance: EFAVIRENZ\EMTRICITABINE\TENOFOVIR DISOPROXIL FUMARATE
     Dosage: UNK
     Route: 048
     Dates: start: 20111013, end: 20111230
  6. ATRIPLA [Suspect]
     Active Substance: EFAVIRENZ\EMTRICITABINE\TENOFOVIR DISOPROXIL FUMARATE
     Dosage: UNK
     Route: 048
     Dates: start: 20111031, end: 20120130
  7. STRIBILD [Suspect]
     Active Substance: COBICISTAT\ELVITEGRAVIR\EMTRICITABINE\TENOFOVIR DISOPROXIL FUMARATE
     Indication: HIV infection
     Dosage: UNK
     Route: 048
     Dates: start: 20141216, end: 20180302
  8. STRIBILD [Suspect]
     Active Substance: COBICISTAT\ELVITEGRAVIR\EMTRICITABINE\TENOFOVIR DISOPROXIL FUMARATE
     Dosage: UNK
     Route: 048
     Dates: start: 20140613, end: 20180627
  9. STRIBILD [Suspect]
     Active Substance: COBICISTAT\ELVITEGRAVIR\EMTRICITABINE\TENOFOVIR DISOPROXIL FUMARATE
     Dosage: UNK
     Route: 048
     Dates: start: 20150110, end: 20180627
  10. NORVIR [Concomitant]
     Active Substance: RITONAVIR
  11. PREZCOBIX [Concomitant]
     Active Substance: COBICISTAT\DARUNAVIR ETHANOLATE
  12. PREZISTA [Concomitant]
     Active Substance: DARUNAVIR ETHANOLATE
  13. TIVICAY [Concomitant]
     Active Substance: DOLUTEGRAVIR SODIUM
  14. TRIUMEQ [Concomitant]
     Active Substance: ABACAVIR SULFATE\DOLUTEGRAVIR SODIUM\LAMIVUDINE
  15. ESTRADIOL [Concomitant]
     Active Substance: ESTRADIOL
  16. FENOFIBRATE [Concomitant]
     Active Substance: FENOFIBRATE
  17. CIPROFLOXACIN [Concomitant]
     Active Substance: CIPROFLOXACIN
  18. TOLTERODINE [Concomitant]
     Active Substance: TOLTERODINE
  19. DIVALPROEX SODIUM [Concomitant]
     Active Substance: DIVALPROEX SODIUM
  20. VALACYCLOVIR HYDROCHLORIDE [Concomitant]
     Active Substance: VALACYCLOVIR HYDROCHLORIDE
  21. HYDROCHLOROTHIAZIDE\TRIAMTERENE [Concomitant]
     Active Substance: HYDROCHLOROTHIAZIDE\TRIAMTERENE
  22. SYMBICORT [Concomitant]
     Active Substance: BUDESONIDE\FORMOTEROL FUMARATE DIHYDRATE
  23. IRBESARTAN [Concomitant]
     Active Substance: IRBESARTAN
  24. LISINOPRIL [Concomitant]
     Active Substance: LISINOPRIL
  25. METHOCARBAMOL [Concomitant]
     Active Substance: METHOCARBAMOL
  26. DICLOFENAC [Concomitant]
     Active Substance: DICLOFENAC
  27. GABAPENTIN [Concomitant]
     Active Substance: GABAPENTIN
  28. SAPHRIS [Concomitant]
     Active Substance: ASENAPINE MALEATE
  29. PROMETHAZINE [Concomitant]
     Active Substance: PROMETHAZINE HYDROCHLORIDE
  30. LUNESTA [Concomitant]
     Active Substance: ESZOPICLONE
  31. NIASPAN [Concomitant]
     Active Substance: NIACIN
  32. SIMVASTATIN [Concomitant]
     Active Substance: SIMVASTATIN
  33. DIVALPROEX SODIUM [Concomitant]
     Active Substance: DIVALPROEX SODIUM
  34. MAXALT [Concomitant]
     Active Substance: RIZATRIPTAN BENZOATE
  35. HYDROCHLOROTHIAZIDE\LISINOPRIL [Concomitant]
     Active Substance: HYDROCHLOROTHIAZIDE\LISINOPRIL
  36. CITALOPRAM [Concomitant]
     Active Substance: CITALOPRAM HYDROBROMIDE
  37. NAPROXEN [Concomitant]
     Active Substance: NAPROXEN
  38. TIZANIDINE [Concomitant]
     Active Substance: TIZANIDINE
  39. TRAMADOL [Concomitant]
     Active Substance: TRAMADOL
  40. CLONAZEPAM [Concomitant]
     Active Substance: CLONAZEPAM
  41. ABILIFY [Concomitant]
     Active Substance: ARIPIPRAZOLE
  42. PREDNISONE [Concomitant]
     Active Substance: PREDNISONE
  43. ALBUTEROL [Concomitant]
     Active Substance: ALBUTEROL
  44. PANTOPRAZOLE [Concomitant]
     Active Substance: PANTOPRAZOLE
  45. DOXYCYCLINE [Concomitant]
     Active Substance: DOXYCYCLINE
  46. ATENOLOL [Concomitant]
     Active Substance: ATENOLOL
  47. FLUCONAZOLE [Concomitant]
     Active Substance: FLUCONAZOLE
  48. CYCLOBENZAPRINE [Concomitant]
     Active Substance: CYCLOBENZAPRINE
  49. DEXAMETHASONE [Concomitant]
     Active Substance: DEXAMETHASONE
  50. CAPTOPRIL [Concomitant]
     Active Substance: CAPTOPRIL
  51. METOCLOPRAMIDE [Concomitant]
     Active Substance: METOCLOPRAMIDE
  52. HYDROCHLOROTHIAZIDE [Concomitant]
     Active Substance: HYDROCHLOROTHIAZIDE
  53. IMITREX [Concomitant]
     Active Substance: SUMATRIPTAN SUCCINATE
  54. AMITRIPTYLINE [Concomitant]
     Active Substance: AMITRIPTYLINE
  55. LORAZEPAM [Concomitant]
     Active Substance: LORAZEPAM
  56. BENZONATATE [Concomitant]
     Active Substance: BENZONATATE
  57. OMEPRAZOLE [Concomitant]
     Active Substance: OMEPRAZOLE
  58. SIMVASTATIN [Concomitant]
     Active Substance: SIMVASTATIN
  59. MYRBETRIQ [Concomitant]
     Active Substance: MIRABEGRON
  60. SPIRONOLACTONE [Concomitant]
     Active Substance: SPIRONOLACTONE

REACTIONS (22)
  - Multiple fractures [Recovered/Resolved]
  - Chronic kidney disease [Not Recovered/Not Resolved]
  - Acute kidney injury [Not Recovered/Not Resolved]
  - Renal failure [Unknown]
  - Fanconi syndrome acquired [Not Recovered/Not Resolved]
  - Fanconi syndrome acquired [Recovered/Resolved]
  - Foot fracture [Not Recovered/Not Resolved]
  - Bone density decreased [Not Recovered/Not Resolved]
  - Protein urine present [Recovered/Resolved]
  - Decreased activity [Unknown]
  - Quality of life decreased [Unknown]
  - Pain [Not Recovered/Not Resolved]
  - Emotional distress [Not Recovered/Not Resolved]
  - Anxiety [Not Recovered/Not Resolved]
  - Anhedonia [Not Recovered/Not Resolved]
  - Economic problem [Not Recovered/Not Resolved]
  - Loss of personal independence in daily activities [Unknown]
  - Fear [Unknown]
  - Mobility decreased [Not Recovered/Not Resolved]
  - Depression [Not Recovered/Not Resolved]
  - Bone density decreased [Unknown]
  - Osteopenia [Not Recovered/Not Resolved]

NARRATIVE: CASE EVENT DATE: 20170101
